FAERS Safety Report 4622198-2 (Version None)
Quarter: 2005Q1

REPORT INFORMATION
  Report Type: 
  Country: None (occurrence: None)
  Receive Date: 20050324
  Receipt Date: 20050324
  Transmission Date: 20050727
  Serious: Yes (Life-Threatening, Hospitalization)
  Sender: FDA-Public Use
  Company Number: None

PATIENT
  Sex: Male
  Weight: 67 kg

DRUGS (15)
  1. BEVACIZUMAB 5 MG/KG, DAYS 1 AND 15 ON 28 DAY CYCLE [Suspect]
     Indication: GASTRIC CANCER
     Dosage: 332 IV
     Route: 042
     Dates: start: 20050215, end: 20050302
  2. DOCETAXEL (35 MG/M2, DAYS 1,8,15,OF 28 DAY CYCLE) [Suspect]
     Indication: GASTRIC CANCER
     Dosage: 65 IV
     Route: 042
     Dates: start: 20050215, end: 20050302
  3. DEXAMETHASONE [Concomitant]
  4. COMPAZINE [Concomitant]
  5. DECADRON [Concomitant]
  6. DILAUDID [Concomitant]
  7. DTO [Concomitant]
  8. ATIVAN [Concomitant]
  9. EFFEXOR [Concomitant]
  10. LIQUID IRON [Concomitant]
  11. LACTULOSE [Concomitant]
  12. MYCOSTATIN [Concomitant]
  13. OXYCONTIN [Concomitant]
  14. RITALIN [Concomitant]
  15. COLACE [Concomitant]

REACTIONS (11)
  - ACUTE MYOCARDIAL INFARCTION [None]
  - APHASIA [None]
  - ASTHENIA [None]
  - CEREBRAL INFARCTION [None]
  - CEREBROVASCULAR ACCIDENT [None]
  - GRAND MAL CONVULSION [None]
  - HYPOAESTHESIA [None]
  - LACUNAR INFARCTION [None]
  - LOSS OF CONSCIOUSNESS [None]
  - MYOCARDIAL INFARCTION [None]
  - PNEUMONIA [None]
